FAERS Safety Report 10437276 (Version 2)
Quarter: 2014Q3

REPORT INFORMATION
  Report Type: Spontaneous
  Country: US (occurrence: US)
  Receive Date: 20140908
  Receipt Date: 20140908
  Transmission Date: 20150326
  Serious: No
  Sender: FDA-Public Use
  Company Number: US-BRISTOL-MYERS SQUIBB COMPANY-19625433

PATIENT
  Age: 52 Year
  Sex: Female
  Weight: 99.77 kg

DRUGS (1)
  1. ABILIFY [Suspect]
     Active Substance: ARIPIPRAZOLE
     Indication: DEPRESSION
     Dosage: DOSE:2 MG:20OCT2009?5MG:26FEB2010?7.5MG:28FEB2011
     Route: 048
     Dates: start: 20091020

REACTIONS (2)
  - Underdose [Unknown]
  - Wrong technique in drug usage process [Unknown]
